FAERS Safety Report 17207291 (Version 1)
Quarter: 2019Q4

REPORT INFORMATION
  Report Type: Spontaneous
  Country: US (occurrence: US)
  Receive Date: 20191205
  Receipt Date: 20191205
  Transmission Date: 20200122
  Serious: No
  Sender: FDA-Public Use
  Company Number: None

PATIENT

DRUGS (2)
  1. LUBIPROSTONE [Suspect]
     Active Substance: LUBIPROSTONE
     Dosage: STRENGTH 8 MCG/5ML
  2. LUBIPROSTONE [Suspect]
     Active Substance: LUBIPROSTONE
     Dosage: 8 MCG/ML

REACTIONS (3)
  - Product dispensing error [None]
  - Product preparation error [None]
  - Incorrect dose administered [None]
